FAERS Safety Report 10169877 (Version 2)
Quarter: 2014Q2

REPORT INFORMATION
  Report Type: Report from Study
  Country: NZ (occurrence: NZ)
  Receive Date: 20140513
  Receipt Date: 20140521
  Transmission Date: 20141212
  Serious: Yes (Other)
  Sender: FDA-Public Use
  Company Number: PHHY2014NZ056883

PATIENT
  Sex: Female

DRUGS (1)
  1. CLOZARIL [Suspect]
     Dosage: UNK UKN, UNK
     Dates: start: 20111117, end: 20140502

REACTIONS (4)
  - Electrocardiogram QT prolonged [Unknown]
  - Palpitations [Unknown]
  - Tachycardia [Unknown]
  - Dizziness [Unknown]
